FAERS Safety Report 6505987-9 (Version None)
Quarter: 2009Q4

REPORT INFORMATION
  Report Type: 
  Country: None (occurrence: None)
  Receive Date: 20091217
  Receipt Date: 20091217
  Transmission Date: 20100525
  Serious: Yes (Hospitalization)
  Sender: FDA-Public Use
  Company Number: None

PATIENT
  Sex: Male

DRUGS (11)
  1. REVLIMID [Suspect]
     Indication: PROSTATE CANCER
     Dosage: 20MG QD X 21 PO
     Route: 048
     Dates: start: 20090122
  2. LASIX [Concomitant]
  3. PEPCID [Concomitant]
  4. SPIRONOLACTONE [Concomitant]
  5. SIMVASTATIN [Concomitant]
  6. COUMADIN [Concomitant]
  7. CALCIUM [Concomitant]
  8. DIOVAN HCL [Concomitant]
  9. FISH OIL [Concomitant]
  10. ASPIRIN [Concomitant]
  11. M.V.I. [Concomitant]

REACTIONS (1)
  - BRONCHITIS [None]
